FAERS Safety Report 7898898 (Version 2)
Quarter: 2013Q4

REPORT INFORMATION
  Report Type: Spontaneous
  Country: NZ (occurrence: None)
  Receive Date: 20110323
  Receipt Date: 20131119
  Transmission Date: 20140711
  Serious: Yes (Other)
  Sender: FDA-Public Use
  Company Number: 20110198

PATIENT
  Age: 58 Year
  Sex: Female

DRUGS (11)
  1. METHYLENE BLUE [Suspect]
     Indication: PARATHYROIDECTOMY
     Dosage: 5 MG/KG OVER 1 HOUR, INTRAVENOUS
     Route: 042
  2. PAROXETINE [Suspect]
     Indication: OBSESSIVE-COMPULSIVE DISORDER
  3. OMEPRAZOLE [Concomitant]
  4. SIMVASTATIN [Concomitant]
  5. MIDAZOLAM [Concomitant]
  6. SEVOFLURANE [Concomitant]
  7. PROPOFOL [Concomitant]
  8. ROCURONIUM [Concomitant]
  9. NEOSTIGMINE [Concomitant]
  10. ATROPINE [Concomitant]
  11. FENTAMYL [Concomitant]

REACTIONS (13)
  - Hypotension [None]
  - Agitation [None]
  - Unresponsive to stimuli [None]
  - Disorientation [None]
  - Tachycardia [None]
  - Movement disorder [None]
  - Eye movement disorder [None]
  - Fear [None]
  - Anxiety [None]
  - Drug interaction [None]
  - Encephalopathy [None]
  - Dystonia [None]
  - Hypertonia [None]
